FAERS Safety Report 4553352-6 (Version None)
Quarter: 2005Q1

REPORT INFORMATION
  Report Type: 
  Country: None (occurrence: None)
  Receive Date: 20050112
  Receipt Date: 20041224
  Transmission Date: 20050727
  Serious: Yes (Other)
  Sender: FDA-Public Use
  Company Number: JP_041205539

PATIENT
  Age: 73 Year
  Sex: Male
  Weight: 48 kg

DRUGS (2)
  1. ZYPREXA [Suspect]
     Indication: SCHIZOPHRENIA
     Dosage: 5 MG/1 DAY
     Dates: start: 20040721
  2. TASMOLIN (BIPERIDEN) [Concomitant]

REACTIONS (3)
  - CONDITION AGGRAVATED [None]
  - LONG QT SYNDROME [None]
  - VENTRICULAR EXTRASYSTOLES [None]
